FAERS Safety Report 8519614-2 (Version None)
Quarter: 2012Q3

REPORT INFORMATION
  Report Type: 
  Country: None (occurrence: None)
  Receive Date: 20120718
  Receipt Date: 20120703
  Transmission Date: 20120928
  Serious: Yes (Other)
  Sender: FDA-Public Use
  Company Number: CHPA2012US014952

PATIENT
  Age: 76 Year
  Sex: Female

DRUGS (1)
  1. PHENYLEPHRINE HCL [Suspect]
     Indication: NASAL CONGESTION
     Dosage: 1 SPRAY PER NOSTRIL, 4-5 TIMES PER DAY
     Route: 045
     Dates: end: 20120101

REACTIONS (5)
  - DRUG DEPENDENCE [None]
  - INCORRECT DRUG ADMINISTRATION DURATION [None]
  - NEPHROLITHIASIS [None]
  - PROCEDURAL PAIN [None]
  - CARTILAGE INJURY [None]
